FAERS Safety Report 5523695-8 (Version None)
Quarter: 2007Q4

REPORT INFORMATION
  Report Type: 
  Country: None (occurrence: None)
  Receive Date: 20071121
  Receipt Date: 20071119
  Transmission Date: 20080405
  Serious: Yes (Other)
  Sender: FDA-Public Use
  Company Number: IT-BRISTOL-MYERS SQUIBB COMPANY-13987912

PATIENT
  Age: 32 Year
  Sex: Female

DRUGS (1)
  1. METOPROLOL TARTRATE [Suspect]
     Indication: HYPERTROPHIC CARDIOMYOPATHY
     Dosage: STARTED WITH 50 MG BID, INCREASED TO 100 MG BID 1 WEEK LATER.

REACTIONS (1)
  - MYOCARDITIS [None]
